FAERS Safety Report 5332115-8 (Version None)
Quarter: 2007Q2

REPORT INFORMATION
  Report Type: 
  Country: None (occurrence: None)
  Receive Date: 20070523
  Receipt Date: 20070514
  Transmission Date: 20071010
  Serious: Yes (Hospitalization)
  Sender: FDA-Public Use
  Company Number: JP-JNJFOC-20061102680

PATIENT
  Sex: Female
  Weight: 50 kg

DRUGS (33)
  1. REMICADE [Suspect]
     Route: 042
  2. REMICADE [Suspect]
     Route: 042
  3. REMICADE [Suspect]
     Route: 042
  4. REMICADE [Suspect]
     Dosage: 4 INFUSIONS ON UNKNOWN DATES
     Route: 042
  5. REMICADE [Suspect]
     Route: 042
  6. REMICADE [Suspect]
     Route: 042
  7. REMICADE [Suspect]
     Route: 042
  8. REMICADE [Suspect]
     Indication: RHEUMATOID ARTHRITIS
     Route: 042
  9. RHEUMATREX [Suspect]
     Dosage: 6MG/W
     Route: 048
  10. RHEUMATREX [Suspect]
     Indication: RHEUMATOID ARTHRITIS
     Dosage: 4MG/W
     Route: 048
  11. ADRENAL HORMONE PREPARATION [Concomitant]
     Indication: RHEUMATOID ARTHRITIS
  12. PREDONINE [Concomitant]
  13. PREDNISOLONE [Concomitant]
     Route: 048
  14. PREDNISOLONE [Concomitant]
     Route: 048
  15. PREDNISOLONE [Concomitant]
     Route: 048
  16. PREDNISOLONE [Concomitant]
     Indication: RHEUMATOID ARTHRITIS
     Route: 048
  17. MOBIC [Concomitant]
     Indication: RHEUMATOID ARTHRITIS
     Route: 048
  18. FOLIAMIN [Concomitant]
     Route: 048
  19. MAGNESIUM OXIDE [Concomitant]
     Route: 048
  20. ASPIRIN [Concomitant]
     Route: 048
  21. TAKEPRON [Concomitant]
     Route: 048
  22. TICLOPIDINE HCL [Concomitant]
     Route: 048
  23. TENORMIN [Concomitant]
     Route: 048
  24. ADALAT [Concomitant]
     Route: 048
  25. NU-LOTAN [Concomitant]
     Route: 048
  26. SELBEX [Concomitant]
     Route: 048
  27. ITOROL [Concomitant]
     Route: 048
  28. OPALMON [Concomitant]
     Route: 048
  29. GLAKAY [Concomitant]
     Route: 048
  30. ACTONEL [Concomitant]
     Route: 048
  31. KALIMATE [Concomitant]
     Route: 048
  32. SALAZOPYRIN [Concomitant]
     Indication: RHEUMATOID ARTHRITIS
  33. MIZORIBINE [Concomitant]
     Route: 048

REACTIONS (1)
  - BREAST CANCER [None]
